FAERS Safety Report 19675862 (Version 2)
Quarter: 2021Q3

REPORT INFORMATION
  Report Type: Report from Study
  Country: US (occurrence: US)
  Receive Date: 20210809
  Receipt Date: 20210908
  Transmission Date: 20211014
  Serious: Yes (Hospitalization, Other)
  Sender: FDA-Public Use
  Company Number: US-BAUSCH-BL-2021-026954

PATIENT
  Age: 57 Year
  Sex: Male

DRUGS (1)
  1. XIFAXAN [Suspect]
     Active Substance: RIFAXIMIN
     Indication: PRODUCT USED FOR UNKNOWN INDICATION
     Route: 048

REACTIONS (9)
  - Heart rate increased [Unknown]
  - Atrial fibrillation [Unknown]
  - Insomnia [Unknown]
  - Hypertension [Unknown]
  - Hospitalisation [Unknown]
  - Intentional product use issue [Unknown]
  - Diarrhoea [Unknown]
  - Cerebral haemorrhage [Unknown]
  - Hepatic function abnormal [Unknown]

NARRATIVE: CASE EVENT DATE: 202107
